FAERS Safety Report 7076077-4 (Version None)
Quarter: 2010Q4

REPORT INFORMATION
  Report Type: 
  Country: None (occurrence: None)
  Receive Date: 20101101
  Receipt Date: 20101027
  Transmission Date: 20110411
  Serious: No
  Sender: FDA-Public Use
  Company Number: US-BIOGENIDEC-2010BI037106

PATIENT
  Age: 31 Year
  Sex: Female

DRUGS (5)
  1. AVONEX [Suspect]
     Indication: MULTIPLE SCLEROSIS
     Route: 030
     Dates: start: 20021201
  2. AVONEX [Suspect]
     Route: 030
     Dates: end: 20090201
  3. AVONEX [Suspect]
     Route: 030
     Dates: start: 20091201
  4. ACETAMINOPHEN [Concomitant]
     Indication: PREMEDICATION
     Route: 048
     Dates: start: 20021201
  5. ADVIL COLD AND FLU [Concomitant]
     Indication: PREMEDICATION
     Route: 048

REACTIONS (2)
  - INFLUENZA LIKE ILLNESS [None]
  - TREMOR [None]
